FAERS Safety Report 16809054 (Version 1)
Quarter: 2019Q3

REPORT INFORMATION
  Report Type: Report from Study
  Country: CN (occurrence: CN)
  Receive Date: 20190916
  Receipt Date: 20190916
  Transmission Date: 20191005
  Serious: Yes (Death, Other)
  Sender: FDA-Public Use
  Company Number: CN-ROCHE-1884825

PATIENT
  Age: 42 Year
  Sex: Female
  Weight: 35 kg

DRUGS (1)
  1. BEVACIZUMAB. [Suspect]
     Active Substance: BEVACIZUMAB
     Indication: RECTAL CANCER
     Route: 041
     Dates: start: 20160303, end: 20190618

REACTIONS (7)
  - Hepatic failure [Fatal]
  - Injury [Unknown]
  - Diarrhoea [Unknown]
  - Fall [Unknown]
  - Pain in extremity [Unknown]
  - Back pain [Unknown]
  - Fracture [Unknown]
